FAERS Safety Report 9157041 (Version 1)
Quarter: 2013Q1

REPORT INFORMATION
  Report Type: Spontaneous
  Country: US (occurrence: None)
  Receive Date: 20130211
  Receipt Date: 20130211
  Transmission Date: 20140127
  Serious: Yes (Hospitalization, Other)
  Sender: FDA-Public Use
  Company Number: 2013SUN00077

PATIENT
  Age: 41 Year
  Sex: Male

DRUGS (2)
  1. MIRTAZAPINE [Suspect]
     Route: 048
  2. TRAZODONE (TRAZODONE) [Suspect]
     Dosage: 200 MG, AT NIGHT

REACTIONS (2)
  - Priapism [None]
  - Thrombosis [None]
